FAERS Safety Report 5862953-4 (Version None)
Quarter: 2008Q3

REPORT INFORMATION
  Report Type: 
  Country: None (occurrence: None)
  Receive Date: 20080828
  Receipt Date: 20080822
  Transmission Date: 20090109
  Serious: Yes (Hospitalization)
  Sender: FDA-Public Use
  Company Number: A0744993A

PATIENT
  Sex: Female
  Weight: 108.6 kg

DRUGS (1)
  1. AVANDIA [Suspect]
     Dosage: 8MG TWICE PER DAY
     Dates: start: 20050101, end: 20061201

REACTIONS (4)
  - CARDIOMEGALY [None]
  - FLUID OVERLOAD [None]
  - MYOCARDIAL INFARCTION [None]
  - SWELLING [None]
